FAERS Safety Report 16553940 (Version 2)
Quarter: 2019Q4

REPORT INFORMATION
  Report Type: Spontaneous
  Country: US (occurrence: US)
  Receive Date: 20190710
  Receipt Date: 20191125
  Transmission Date: 20200122
  Serious: No
  Sender: FDA-Public Use
  Company Number: US-ALLERGAN-1845587US

PATIENT
  Age: 80 Year
  Sex: Male
  Weight: 178 kg

DRUGS (7)
  1. NAMENDA XR [Suspect]
     Active Substance: MEMANTINE HYDROCHLORIDE
     Dosage: 28 MG, QD
     Route: 048
     Dates: start: 201511
  2. TERAZOSIN [Concomitant]
     Active Substance: TERAZOSIN HYDROCHLORIDE
     Indication: BENIGN PROSTATIC HYPERPLASIA
     Dosage: 2 MG, QD
     Route: 048
     Dates: start: 2008
  3. ARICEPT [Concomitant]
     Active Substance: DONEPEZIL HYDROCHLORIDE
     Dosage: 5 MG, QD
     Dates: start: 2015
  4. NAMENDA XR [Suspect]
     Active Substance: MEMANTINE HYDROCHLORIDE
     Dosage: 28 MG, QD
     Route: 048
     Dates: start: 201511, end: 201511
  5. NAMENDA XR [Suspect]
     Active Substance: MEMANTINE HYDROCHLORIDE
     Indication: DEMENTIA
     Dosage: 28 MG, QD
     Route: 048
     Dates: start: 201512
  6. ARICEPT [Concomitant]
     Active Substance: DONEPEZIL HYDROCHLORIDE
     Dosage: 10 MG, QD
     Route: 048
     Dates: start: 2015
  7. ARICEPT [Concomitant]
     Active Substance: DONEPEZIL HYDROCHLORIDE
     Indication: DEMENTIA
     Dosage: 3 MG, QD
     Route: 048
     Dates: start: 2015

REACTIONS (10)
  - Abnormal dreams [Not Recovered/Not Resolved]
  - Dementia [Not Recovered/Not Resolved]
  - Cerebral disorder [Not Recovered/Not Resolved]
  - Mental impairment [Recovering/Resolving]
  - Confusional state [Not Recovered/Not Resolved]
  - Product storage error [Unknown]
  - Disorientation [Unknown]
  - Sleep talking [Unknown]
  - Condition aggravated [Not Recovered/Not Resolved]
  - Therapeutic response decreased [Unknown]

NARRATIVE: CASE EVENT DATE: 2015
